FAERS Safety Report 9502440 (Version 1)
Quarter: 2013Q3

REPORT INFORMATION
  Report Type: Spontaneous
  Country: FR (occurrence: FR)
  Receive Date: 20130906
  Receipt Date: 20130906
  Transmission Date: 20140515
  Serious: Yes (Hospitalization)
  Sender: FDA-Public Use
  Company Number: FR-ABBOTT-13X-056-1142414-00

PATIENT
  Age: 49 Year
  Sex: Female

DRUGS (5)
  1. DEPAKOTE [Suspect]
     Indication: DEPRESSION
     Route: 048
     Dates: start: 200903
  2. ZELBORAF [Suspect]
     Indication: MALIGNANT MELANOMA
     Route: 048
     Dates: start: 20121015
  3. PARAFFIN, WHITE SOFT [Suspect]
     Indication: PRODUCT USED FOR UNKNOWN INDICATION
     Route: 061
  4. MUPHORAN [Suspect]
     Indication: MALIGNANT MELANOMA
     Route: 058
     Dates: start: 20130418, end: 20130418
  5. MUPHORAN [Suspect]
     Route: 058
     Dates: start: 20130510, end: 20130510

REACTIONS (3)
  - Heat stroke [Recovered/Resolved]
  - Photosensitivity reaction [Recovered/Resolved]
  - Face oedema [Recovered/Resolved]
